FAERS Safety Report 5497999-1 (Version None)
Quarter: 2007Q4

REPORT INFORMATION
  Report Type: 
  Country: None (occurrence: None)
  Receive Date: 20071018
  Receipt Date: 20061211
  Transmission Date: 20080405
  Serious: Yes (Life-Threatening, Other)
  Sender: FDA-Public Use
  Company Number: 2005083512

PATIENT
  Age: 14 Year
  Sex: Female

DRUGS (8)
  1. NEURONTIN [Suspect]
     Indication: BIPOLAR DISORDER
     Dosage: 1600 MG (2 IN 1 D)
     Dates: start: 19990509, end: 20031107
  2. ZOLOFT [Concomitant]
  3. RISPERIDONE [Concomitant]
  4. LAMICTAL [Concomitant]
  5. CELEXA [Concomitant]
  6. SONATA [Concomitant]
  7. AMBIEN [Concomitant]
  8. TRAZODONE HCL [Concomitant]

REACTIONS (3)
  - DEPRESSION [None]
  - DRUG INEFFECTIVE [None]
  - SUICIDE ATTEMPT [None]
